FAERS Safety Report 16545898 (Version 2)
Quarter: 2019Q4

REPORT INFORMATION
  Report Type: Report from Study
  Country: US (occurrence: US)
  Receive Date: 20190709
  Receipt Date: 20191222
  Transmission Date: 20200122
  Serious: Yes (Other)
  Sender: FDA-Public Use
  Company Number: PHHY2019US154787

PATIENT
  Age: 7 Year
  Sex: Male

DRUGS (3)
  1. CYCLOPHOSPHAMIDE. [Concomitant]
     Active Substance: CYCLOPHOSPHAMIDE
     Indication: CHEMOTHERAPY
     Route: 065
  2. KYMRIAH [Suspect]
     Active Substance: TISAGENLECLEUCEL
     Indication: B-CELL TYPE ACUTE LEUKAEMIA
     Dosage: UNK, ONCE/SINGLE
     Route: 041
     Dates: start: 2018
  3. FLUDARABINE [Concomitant]
     Active Substance: FLUDARABINE PHOSPHATE
     Indication: CHEMOTHERAPY
     Route: 065

REACTIONS (16)
  - Viral upper respiratory tract infection [Unknown]
  - Cytokine release syndrome [Recovered/Resolved]
  - Human metapneumovirus test positive [Unknown]
  - Coagulopathy [Unknown]
  - Influenza [Unknown]
  - Hypoxia [Unknown]
  - Clostridial infection [Unknown]
  - Haematocrit decreased [Unknown]
  - Pyrexia [Unknown]
  - Gastrointestinal bacterial infection [Unknown]
  - Viral sinusitis [Unknown]
  - Lymphocyte count decreased [Recovered/Resolved]
  - Haemoglobin decreased [Unknown]
  - Hypotension [Unknown]
  - Adenovirus infection [Unknown]
  - White blood cell count decreased [Unknown]
